FAERS Safety Report 4496440-5 (Version None)
Quarter: 2004Q4

REPORT INFORMATION
  Report Type: 
  Country: None (occurrence: None)
  Receive Date: 20041109
  Receipt Date: 20041103
  Transmission Date: 20050328
  Serious: Yes (Death)
  Sender: FDA-Public Use
  Company Number: US-JNJFOC-20040908276

PATIENT
  Age: 4 Month
  Sex: Female

DRUGS (2)
  1. PSEUDOEPHEDRINE HYDROCHLORIDE [Suspect]
     Indication: INTENTIONAL OVERDOSE
     Dosage: 7.5 MG/0.8 ML, 15 ML
     Route: 049
  2. AMOXICILLIN [Suspect]
     Indication: INTENTIONAL OVERDOSE
     Route: 049

REACTIONS (4)
  - CARDIO-RESPIRATORY ARREST [None]
  - FOREIGN BODY ASPIRATION [None]
  - OVERDOSE [None]
  - VICTIM OF HOMICIDE [None]
